FAERS Safety Report 19041870 (Version 2)
Quarter: 2021Q1

REPORT INFORMATION
  Report Type: Report from Study
  Country: US (occurrence: US)
  Receive Date: 20210322
  Receipt Date: 20210326
  Transmission Date: 20210420
  Serious: No
  Sender: FDA-Public Use
  Company Number: NVSC2021US058159

PATIENT
  Age: 59 Year
  Sex: Female

DRUGS (1)
  1. GILENYA [Suspect]
     Active Substance: FINGOLIMOD HYDROCHLORIDE
     Indication: WHITE BLOOD CELL DISORDER
     Dosage: UNK
     Route: 065

REACTIONS (2)
  - White blood cell disorder [Unknown]
  - Product use in unapproved indication [Unknown]
